FAERS Safety Report 8357419-6 (Version None)
Quarter: 2012Q2

REPORT INFORMATION
  Report Type: 
  Country: None (occurrence: None)
  Receive Date: 20120510
  Receipt Date: 20120430
  Transmission Date: 20120825
  Serious: Yes (Hospitalization)
  Sender: FDA-Public Use
  Company Number: 2012SP022955

PATIENT
  Sex: Female

DRUGS (2)
  1. QUETIAPINE [Concomitant]
  2. SYCREST (ASENAPINE / 05706901/ ) [Suspect]
     Indication: PRODUCT USED FOR UNKNOWN INDICATION
     Dosage: SL
     Route: 060

REACTIONS (1)
  - MANIA [None]
